FAERS Safety Report 7624326-3 (Version None)
Quarter: 2011Q3

REPORT INFORMATION
  Report Type: 
  Country: None (occurrence: None)
  Receive Date: 20110712
  Receipt Date: 20110628
  Transmission Date: 20111222
  Serious: No
  Sender: FDA-Public Use
  Company Number: 201105032

PATIENT
  Age: 59 Year
  Sex: Male
  Weight: 77.1115 kg

DRUGS (16)
  1. VIAGRA [Concomitant]
  2. TESTIM [Suspect]
     Indication: SEXUAL DYSFUNCTION
     Dosage: SEE IMAGE
     Route: 062
     Dates: start: 20110401, end: 20110501
  3. TESTIM [Suspect]
     Indication: BLOOD TESTOSTERONE DECREASED
     Dosage: SEE IMAGE
     Route: 062
     Dates: start: 20110401, end: 20110501
  4. TESTIM [Suspect]
     Indication: SEXUAL DYSFUNCTION
     Dosage: SEE IMAGE
     Route: 062
  5. TESTIM [Suspect]
     Indication: BLOOD TESTOSTERONE DECREASED
     Dosage: SEE IMAGE
     Route: 062
  6. TESTIM [Suspect]
     Indication: SEXUAL DYSFUNCTION
     Dosage: SEE IMAGE
     Route: 062
     Dates: end: 20110501
  7. TESTIM [Suspect]
     Indication: BLOOD TESTOSTERONE DECREASED
     Dosage: SEE IMAGE
     Route: 062
     Dates: end: 20110501
  8. TESTIM [Suspect]
     Indication: SEXUAL DYSFUNCTION
     Dosage: SEE IMAGE
     Route: 062
     Dates: start: 20110420, end: 20110513
  9. TESTIM [Suspect]
     Indication: BLOOD TESTOSTERONE DECREASED
     Dosage: SEE IMAGE
     Route: 062
     Dates: start: 20110420, end: 20110513
  10. TESTIM [Suspect]
     Indication: SEXUAL DYSFUNCTION
     Dosage: SEE IMAGE
     Route: 062
     Dates: start: 20110301, end: 20110513
  11. TESTIM [Suspect]
     Indication: BLOOD TESTOSTERONE DECREASED
     Dosage: SEE IMAGE
     Route: 062
     Dates: start: 20110301, end: 20110513
  12. TESTIM [Suspect]
     Indication: SEXUAL DYSFUNCTION
     Dosage: SEE IMAGE
     Route: 062
     Dates: end: 20110101
  13. TESTIM [Suspect]
     Indication: BLOOD TESTOSTERONE DECREASED
     Dosage: SEE IMAGE
     Route: 062
     Dates: end: 20110101
  14. SLEEP AID (DIPHENHYDRAMINE HYDROCHLORIDE) [Concomitant]
  15. XANAX [Concomitant]
  16. BENICAR [Concomitant]

REACTIONS (21)
  - APPLICATION SITE ATROPHY [None]
  - BLOOD PRESSURE FLUCTUATION [None]
  - CONVERSION DISORDER [None]
  - DEPRESSION [None]
  - YELLOW SKIN [None]
  - MUSCLE ATROPHY [None]
  - NEURALGIA [None]
  - HEART VALVE INCOMPETENCE [None]
  - DILATATION VENTRICULAR [None]
  - COUGH [None]
  - FATIGUE [None]
  - DYSARTHRIA [None]
  - DYSPNOEA [None]
  - WHEEZING [None]
  - LIPOATROPHY [None]
  - WEIGHT DECREASED [None]
  - DECREASED APPETITE [None]
  - CHEST DISCOMFORT [None]
  - RENAL IMPAIRMENT [None]
  - STRESS [None]
  - ABDOMINAL PAIN UPPER [None]
